FAERS Safety Report 17091514 (Version 4)
Quarter: 2021Q3

REPORT INFORMATION
  Report Type: Spontaneous
  Country: US (occurrence: US)
  Receive Date: 20191129
  Receipt Date: 20210813
  Transmission Date: 20211014
  Serious: Yes (Other)
  Sender: FDA-Public Use
  Company Number: US-GILEAD-2019-0439988

PATIENT
  Sex: Male

DRUGS (1)
  1. TRUVADA [Suspect]
     Active Substance: EMTRICITABINE\TENOFOVIR DISOPROXIL FUMARATE
     Indication: PROPHYLAXIS AGAINST HIV INFECTION
     Dosage: 300 MG
     Route: 048
     Dates: start: 20180301, end: 20180707

REACTIONS (3)
  - Renal failure [Unknown]
  - Chronic kidney disease [Unknown]
  - Renal injury [Not Recovered/Not Resolved]
